FAERS Safety Report 12814456 (Version 1)
Quarter: 2016Q4

REPORT INFORMATION
  Report Type: Spontaneous
  Country: US (occurrence: US)
  Receive Date: 20161005
  Receipt Date: 20161005
  Transmission Date: 20170207
  Serious: No
  Sender: FDA-Public Use
  Company Number: US-AMGEN-USASP2016054258

PATIENT
  Age: 59 Year
  Sex: Female
  Weight: 55.33 kg

DRUGS (7)
  1. LIPITOR [Concomitant]
     Active Substance: ATORVASTATIN CALCIUM
     Dosage: 10 MG, QD
  2. CALCIUM + VIT D [Concomitant]
     Active Substance: CALCIUM\VITAMIN D
     Dosage: 1200 MG, UNK
  3. ATENOLOL. [Concomitant]
     Active Substance: ATENOLOL
     Dosage: 50 MG, QD
  4. EXEMESTANE. [Concomitant]
     Active Substance: EXEMESTANE
     Dosage: 25 MG, QD
  5. MACROBID [Concomitant]
     Active Substance: NITROFURANTOIN\NITROFURANTOIN MONOHYDRATE
  6. PROLIA [Suspect]
     Active Substance: DENOSUMAB
     Indication: BREAST CANCER
     Dosage: 60 MG, UNK
     Route: 065
  7. PROCORT                            /00028601/ [Concomitant]
     Dosage: UNK UNK, BID

REACTIONS (5)
  - Atrophic vulvovaginitis [Unknown]
  - Urinary tract infection [Recovered/Resolved]
  - Cystitis [Recovered/Resolved]
  - Haemorrhoids [Unknown]
  - Urethritis noninfective [Not Recovered/Not Resolved]
